FAERS Safety Report 6262366-X (Version None)
Quarter: 2009Q3

REPORT INFORMATION
  Report Type: 
  Country: None (occurrence: None)
  Receive Date: 20090709
  Receipt Date: 20090706
  Transmission Date: 20100115
  Serious: Yes (Death)
  Sender: FDA-Public Use
  Company Number: PHHY2009FR13908

PATIENT
  Sex: Female

DRUGS (5)
  1. EXELON [Suspect]
     Indication: DEMENTIA ALZHEIMER'S TYPE
     Dosage: 4.6 MG
     Route: 062
  2. EXELON [Suspect]
     Dosage: 9.5 MG
     Route: 062
  3. ACEBUTOLOL [Concomitant]
     Indication: HYPERTENSION
     Dosage: 400 MG, QD
  4. ESIDRIX [Concomitant]
     Indication: HYPERTENSION
     Dosage: 25 MG, QD
  5. COLLYRIUM [Concomitant]

REACTIONS (2)
  - MALAISE [None]
  - SUDDEN DEATH [None]
